FAERS Safety Report 25095691 (Version 2)
Quarter: 2025Q1

REPORT INFORMATION
  Report Type: Spontaneous
  Country: US (occurrence: US)
  Receive Date: 20250319
  Receipt Date: 20250325
  Transmission Date: 20250409
  Serious: Yes (Other)
  Sender: SANOFI AVENTIS
  Company Number: US-SANOFI-02446215

PATIENT
  Age: 42 Year
  Sex: Male

DRUGS (3)
  1. LANTUS [Suspect]
     Active Substance: INSULIN GLARGINE
     Indication: Latent autoimmune diabetes in adults
     Dates: start: 202107
  2. LANTUS [Suspect]
     Active Substance: INSULIN GLARGINE
     Dosage: 25 IU, QD
  3. LANTUS [Suspect]
     Active Substance: INSULIN GLARGINE

REACTIONS (4)
  - Renal transplant [Unknown]
  - Blood glucose increased [Unknown]
  - Drug ineffective [Unknown]
  - Prescription drug used without a prescription [Unknown]

NARRATIVE: CASE EVENT DATE: 20210101
